FAERS Safety Report 13250971 (Version 1)
Quarter: 2017Q1

REPORT INFORMATION
  Report Type: Spontaneous
  Country: US (occurrence: US)
  Receive Date: 20170220
  Receipt Date: 20170220
  Transmission Date: 20170428
  Serious: No
  Sender: FDA-Public Use
  Company Number: US-TEVA-726187ACC

PATIENT
  Age: 9 Year
  Sex: Male
  Weight: 29.06 kg

DRUGS (1)
  1. AMOXIFOS [Suspect]
     Active Substance: AMOXICILLIN
     Route: 048

REACTIONS (1)
  - Blood glucose increased [Unknown]
